FAERS Safety Report 8175034-4 (Version None)
Quarter: 2012Q1

REPORT INFORMATION
  Report Type: 
  Country: None (occurrence: None)
  Receive Date: 20120229
  Receipt Date: 20120221
  Transmission Date: 20120608
  Serious: Yes (Hospitalization)
  Sender: FDA-Public Use
  Company Number: PHHY2012GB014892

PATIENT
  Age: 68 Year
  Sex: Female

DRUGS (4)
  1. RIFAMPICIN [Suspect]
     Dates: start: 20120127, end: 20120129
  2. ABIRATERONE ACETATE [Suspect]
  3. ETHAMBUTOL HYDROCHLORIDE [Suspect]
     Indication: TUBERCULOSIS
     Route: 048
     Dates: start: 20120127, end: 20120129
  4. RIFAMPICIN [Suspect]
     Dates: start: 20120207

REACTIONS (4)
  - DYSPNOEA [None]
  - CONFUSIONAL STATE [None]
  - COORDINATION ABNORMAL [None]
  - MUSCULAR WEAKNESS [None]
